FAERS Safety Report 13300306 (Version 1)
Quarter: 2017Q1

REPORT INFORMATION
  Report Type: Spontaneous
  Country: RS (occurrence: RS)
  Receive Date: 20170307
  Receipt Date: 20170307
  Transmission Date: 20170428
  Serious: Yes (Death)
  Sender: FDA-Public Use
  Company Number: RS-ENDO PHARMACEUTICALS INC-2017-001036

PATIENT

DRUGS (2)
  1. HALOPERIDOL TABLETS [Suspect]
     Active Substance: HALOPERIDOL
     Indication: DELIRIUM TREMENS
     Dosage: UNK UNK, UNKNOWN
     Route: 065
  2. DIAZEPAM TABLETS [Suspect]
     Active Substance: DIAZEPAM
     Indication: DELIRIUM TREMENS
     Dosage: UNK UNK, UNKNOWN
     Route: 065

REACTIONS (1)
  - Pulmonary embolism [Fatal]
